FAERS Safety Report 5784103-5 (Version None)
Quarter: 2008Q2

REPORT INFORMATION
  Report Type: 
  Country: None (occurrence: None)
  Receive Date: 20080605
  Receipt Date: 20080401
  Transmission Date: 20081010
  Serious: No
  Sender: FDA-Public Use
  Company Number: A0718509A

PATIENT
  Age: 51 Year
  Sex: Female

DRUGS (3)
  1. ALLI [Suspect]
     Dates: start: 20080310, end: 20080311
  2. ANTIHYPERTENSIVE [Concomitant]
  3. THYROID TAB [Concomitant]

REACTIONS (1)
  - FEELING JITTERY [None]
